FAERS Safety Report 18457975 (Version 3)
Quarter: 2020Q4

REPORT INFORMATION
  Report Type: Spontaneous
  Country: US (occurrence: US)
  Receive Date: 20201103
  Receipt Date: 20201111
  Transmission Date: 20210114
  Serious: Yes (Hospitalization, Other)
  Sender: FDA-Public Use
  Company Number: US-PFIZER INC-2020418554

PATIENT
  Age: 83 Year
  Sex: Male

DRUGS (1)
  1. METHOTREXATE SODIUM. [Suspect]
     Active Substance: METHOTREXATE SODIUM
     Indication: RHEUMATOID ARTHRITIS
     Dosage: UNK

REACTIONS (6)
  - Constipation [Unknown]
  - Pneumomediastinum [Unknown]
  - Diffuse large B-cell lymphoma [Unknown]
  - Pneumothorax [Unknown]
  - Actinomycosis [Unknown]
  - Hypercalcaemia [Unknown]
